FAERS Safety Report 7850961-3 (Version None)
Quarter: 2011Q4

REPORT INFORMATION
  Report Type: 
  Country: None (occurrence: None)
  Receive Date: 20111026
  Receipt Date: 20111019
  Transmission Date: 20120403
  Serious: Yes (Other)
  Sender: FDA-Public Use
  Company Number: FR-JNJFOC-20111009792

PATIENT
  Age: 77 Year
  Sex: Female

DRUGS (2)
  1. TRABECTEDIN [Suspect]
     Indication: OVARIAN CANCER
     Route: 042
  2. DOXORUBICIN HYDROCHLORIDE [Suspect]
     Indication: PRODUCT USED FOR UNKNOWN INDICATION
     Route: 042

REACTIONS (1)
  - NEUROPATHY PERIPHERAL [None]
